FAERS Safety Report 19487877 (Version 1)
Quarter: 2021Q3

REPORT INFORMATION
  Report Type: Report from Study
  Country: AR (occurrence: AR)
  Receive Date: 20210702
  Receipt Date: 20210702
  Transmission Date: 20211014
  Serious: Yes (Other)
  Sender: FDA-Public Use
  Company Number: NVSC2021AR145938

PATIENT
  Sex: Female

DRUGS (2)
  1. DIOVAN [Suspect]
     Active Substance: VALSARTAN
     Dosage: 320 (MORE THAN 10 YEAR AGO)
     Route: 065
  2. DIOVAN [Suspect]
     Active Substance: VALSARTAN
     Indication: PRODUCT USED FOR UNKNOWN INDICATION
     Dosage: 160 MG (MORE THAN 10 YEARS AGO)
     Route: 065

REACTIONS (4)
  - General physical health deterioration [Unknown]
  - Breast cancer [Unknown]
  - Aplastic anaemia [Unknown]
  - Metastasis [Unknown]
